FAERS Safety Report 17449113 (Version 1)
Quarter: 2020Q1

REPORT INFORMATION
  Report Type: Spontaneous
  Country: FR (occurrence: FR)
  Receive Date: 20200224
  Receipt Date: 20200224
  Transmission Date: 20200409
  Serious: Yes (Other)
  Sender: FDA-Public Use
  Company Number: FR-TEVA-2020-FR-1190311

PATIENT
  Age: 70 Year
  Sex: Male
  Weight: 108 kg

DRUGS (6)
  1. VANCOMYCINE [Suspect]
     Active Substance: VANCOMYCIN
     Indication: STAPHYLOCOCCAL INFECTION
     Dosage: 3 GRAM
     Route: 042
     Dates: start: 20191120, end: 20191126
  2. METHYLPREDNISOLONE. [Concomitant]
     Active Substance: METHYLPREDNISOLONE
  3. ATORVASTATINE [Concomitant]
     Active Substance: ATORVASTATIN
  4. FUMARATE ACIDE DE BISOPROLOL [Concomitant]
     Active Substance: BISOPROLOL
  5. PANTOPRAZOLE [Concomitant]
     Active Substance: PANTOPRAZOLE
  6. AUGMENTIN [Suspect]
     Active Substance: AMOXICILLIN\CLAVULANATE POTASSIUM
     Indication: STAPHYLOCOCCAL INFECTION
     Dates: start: 20191120

REACTIONS (1)
  - Acute kidney injury [Not Recovered/Not Resolved]

NARRATIVE: CASE EVENT DATE: 20191126
